FAERS Safety Report 4940462-4 (Version None)
Quarter: 2006Q1

REPORT INFORMATION
  Report Type: 
  Country: None (occurrence: None)
  Receive Date: 20060131
  Receipt Date: 20051202
  Transmission Date: 20060701
  Serious: No
  Sender: FDA-Public Use
  Company Number: 200520803US

PATIENT
  Age: 35 Year
  Sex: Female

DRUGS (1)
  1. KETEK [Suspect]
     Indication: SINUSITIS
     Dosage: 800 MG QD PO
     Route: 048
     Dates: start: 20051130, end: 20051202

REACTIONS (5)
  - AGEUSIA [None]
  - DIPLOPIA [None]
  - HYPOAESTHESIA [None]
  - NAUSEA [None]
  - VERTIGO [None]
